FAERS Safety Report 5783192-1 (Version None)
Quarter: 2008Q2

REPORT INFORMATION
  Report Type: 
  Country: None (occurrence: None)
  Receive Date: 20080624
  Receipt Date: 20080617
  Transmission Date: 20081010
  Serious: Yes (Other)
  Sender: FDA-Public Use
  Company Number: US-AMGEN-KDL287727

PATIENT
  Sex: Female

DRUGS (3)
  1. ENBREL [Suspect]
     Indication: PSORIASIS
     Route: 058
     Dates: start: 20080315
  2. NEXIUM [Concomitant]
  3. ZOLOFT [Concomitant]
     Dates: start: 20020101

REACTIONS (1)
  - GESTATIONAL DIABETES [None]
